FAERS Safety Report 17433224 (Version 1)
Quarter: 2020Q1

REPORT INFORMATION
  Report Type: Spontaneous
  Country: FR (occurrence: FR)
  Receive Date: 20200219
  Receipt Date: 20200219
  Transmission Date: 20200409
  Serious: Yes (Life-Threatening)
  Sender: FDA-Public Use
  Company Number: FR-BAXTER-2020BAX003309

PATIENT
  Age: 8 Year
  Sex: Male

DRUGS (1)
  1. ENDOXAN 1000 MG, POUDRE POUR SOLUTIONINJECTABLE [Suspect]
     Active Substance: CYCLOPHOSPHAMIDE
     Indication: NEOPLASM MALIGNANT
     Dosage: 4 INJECTIONS AT 12 HOUR INTERVALS
     Route: 042
     Dates: start: 20191216, end: 20191219

REACTIONS (3)
  - Pyrexia [Recovered/Resolved]
  - Aphasia [Recovered/Resolved]
  - Cystitis haemorrhagic [Recovered/Resolved]

NARRATIVE: CASE EVENT DATE: 20191226
